FAERS Safety Report 24765571 (Version 1)
Quarter: 2024Q4

REPORT INFORMATION
  Report Type: Spontaneous
  Country: US (occurrence: None)
  Receive Date: 20241221
  Receipt Date: 20241221
  Transmission Date: 20250115
  Serious: Yes (Death, Hospitalization)
  Sender: Public
  Company Number: None

PATIENT
  Sex: Female
  Weight: 87.6 kg

DRUGS (3)
  1. CYCLOPHOSPHAMIDE [Suspect]
     Active Substance: CYCLOPHOSPHAMIDE
     Indication: Leukaemia
  2. DOXORUBICIN HYDROCHLORIDE [Suspect]
     Active Substance: DOXORUBICIN HYDROCHLORIDE
  3. TAXOL [Suspect]
     Active Substance: PACLITAXEL

REACTIONS (7)
  - Leukaemia [None]
  - Acute myeloid leukaemia [None]
  - Nail discolouration [None]
  - Constipation [None]
  - Dermatitis [None]
  - Transfusion [None]
  - Post procedural fever [None]

NARRATIVE: CASE EVENT DATE: 20240210
